FAERS Safety Report 10577072 (Version 1)
Quarter: 2014Q4

REPORT INFORMATION
  Report Type: Spontaneous
  Country: US (occurrence: US)
  Receive Date: 20141111
  Receipt Date: 20141111
  Transmission Date: 20150529
  Serious: No
  Sender: FDA-Public Use
  Company Number: US-GLAXOSMITHKLINE-US2014GSK018342

PATIENT
  Sex: Female

DRUGS (2)
  1. LAMOTRIGINE. [Suspect]
     Active Substance: LAMOTRIGINE
     Indication: EPILEPSY
     Dosage: UNK, U
  2. LAMICTAL XR [Concomitant]
     Active Substance: LAMOTRIGINE

REACTIONS (3)
  - Headache [Unknown]
  - Rash [Unknown]
  - Drug ineffective [Unknown]
